FAERS Safety Report 24621449 (Version 1)
Quarter: 2024Q4

REPORT INFORMATION
  Report Type: Spontaneous
  Country: CN (occurrence: CN)
  Receive Date: 20241114
  Receipt Date: 20241114
  Transmission Date: 20250115
  Serious: Yes (Hospitalization)
  Sender: G1 THERAPEUTICS
  Company Number: CN-ADR-1305011517231202400159

PATIENT

DRUGS (4)
  1. TRILACICLIB [Suspect]
     Active Substance: TRILACICLIB
     Indication: Lung neoplasm malignant
     Dosage: 300 MG, QD
     Route: 042
     Dates: start: 20241010, end: 20241012
  2. ETOPOSIDE [Suspect]
     Active Substance: ETOPOSIDE
     Indication: Lung neoplasm malignant
     Dosage: 0.1 G, QD
     Route: 042
     Dates: start: 20241010, end: 20241012
  3. TORIPALIMAB [Suspect]
     Active Substance: TORIPALIMAB
     Indication: Lung neoplasm malignant
     Dosage: 240 MG, QD
     Route: 042
     Dates: start: 20241010, end: 20241010
  4. SURUFATINIB [Suspect]
     Active Substance: SURUFATINIB
     Indication: Lung neoplasm malignant
     Dosage: 300 MG, QD
     Route: 048
     Dates: start: 20241010, end: 20241107

REACTIONS (1)
  - Platelet count decreased [Not Recovered/Not Resolved]

NARRATIVE: CASE EVENT DATE: 20241029
